FAERS Safety Report 4478840-2 (Version None)
Quarter: 2004Q3

REPORT INFORMATION
  Report Type: 
  Country: None (occurrence: None)
  Receive Date: 20040923
  Receipt Date: 20040809
  Transmission Date: 20050211
  Serious: No
  Sender: FDA-Public Use
  Company Number: USA040875118

PATIENT
  Age: 91 Year
  Sex: Female

DRUGS (1)
  1. FORTEO [Suspect]
     Indication: OSTEOPOROSIS
     Dates: start: 20040720

REACTIONS (5)
  - DISCOMFORT [None]
  - HYPERHIDROSIS [None]
  - MUSCLE CRAMP [None]
  - NAUSEA [None]
  - VOMITING [None]
